FAERS Safety Report 5401924-9 (Version None)
Quarter: 2007Q3

REPORT INFORMATION
  Report Type: 
  Country: None (occurrence: None)
  Receive Date: 20070726
  Receipt Date: 20070720
  Transmission Date: 20080115
  Serious: Yes (Life-Threatening)
  Sender: FDA-Public Use
  Company Number: 2007-161624-NL

PATIENT
  Age: 80 Year
  Sex: Female

DRUGS (8)
  1. MIRTAZAPINE [Suspect]
     Indication: DEPRESSION
     Dosage: 15 MG
     Route: 048
     Dates: start: 20070605, end: 20070611
  2. FOLIC ACID [Concomitant]
  3. ACIDUM ASCORBICUM [Concomitant]
  4. PHLOROGLUCINOL [Concomitant]
  5. ACETAMINOPHEN [Concomitant]
  6. GALANTAMINE HYDROBROMIDE [Concomitant]
  7. ISRADIPINE [Concomitant]
  8. VANCOMYCIN [Concomitant]

REACTIONS (8)
  - ELECTROCARDIOGRAM QT PROLONGED [None]
  - HYPERCHLORAEMIA [None]
  - LOSS OF CONSCIOUSNESS [None]
  - OVERDOSE [None]
  - RENAL FAILURE [None]
  - SECONDARY HYPOTHYROIDISM [None]
  - SYNCOPE [None]
  - TORSADE DE POINTES [None]
